FAERS Safety Report 4888091-5 (Version None)
Quarter: 2006Q1

REPORT INFORMATION
  Report Type: 
  Country: None (occurrence: None)
  Receive Date: 20060123
  Receipt Date: 20051005
  Transmission Date: 20060701
  Serious: Yes (Hospitalization)
  Sender: FDA-Public Use
  Company Number: US-MERCK-0510USA04449

PATIENT
  Age: 48 Year
  Sex: Female
  Weight: 68 kg

DRUGS (9)
  1. METHOTREXATE [Concomitant]
     Route: 065
  2. ENBREL [Concomitant]
     Route: 065
  3. INSULIN [Concomitant]
     Route: 065
  4. VIOXX [Suspect]
     Indication: RHEUMATOID ARTHRITIS
     Route: 048
     Dates: start: 20010101, end: 20040101
  5. AVALIDE [Concomitant]
     Route: 065
  6. COREG [Concomitant]
     Route: 065
  7. DIGOXIN [Concomitant]
     Route: 065
  8. ZOCOR [Concomitant]
     Route: 048
  9. AVAPRO [Concomitant]
     Route: 065

REACTIONS (2)
  - CARDIAC FAILURE CONGESTIVE [None]
  - NEOPLASM MALIGNANT [None]
